FAERS Safety Report 9857063 (Version 1)
Quarter: 2014Q1

REPORT INFORMATION
  Report Type: Spontaneous
  Country: JP (occurrence: JP)
  Receive Date: 20140130
  Receipt Date: 20140130
  Transmission Date: 20141002
  Serious: Yes (Other)
  Sender: FDA-Public Use
  Company Number: JP-ASTRAZENECA-2014SE06720

PATIENT
  Age: 33 Year
  Sex: 0

DRUGS (3)
  1. MEROPENEM [Suspect]
     Indication: LUNG INFECTION
     Route: 042
  2. CIPROXAN [Concomitant]
  3. UNSPECIFIED STEROID [Concomitant]
     Indication: MYOCARDITIS

REACTIONS (1)
  - Liver disorder [Recovering/Resolving]
